FAERS Safety Report 5578476-6 (Version None)
Quarter: 2007Q4

REPORT INFORMATION
  Report Type: 
  Country: None (occurrence: None)
  Receive Date: 20071227
  Receipt Date: 20070918
  Transmission Date: 20080405
  Serious: Yes (Hospitalization, Other)
  Sender: FDA-Public Use
  Company Number: 2007BI020270

PATIENT
  Age: 38 Year
  Sex: Female

DRUGS (3)
  1. NATALIZUMAB (NATALIZUMAB) [Suspect]
     Indication: MULTIPLE SCLEROSIS
     Dosage: 300 MG; QM; IV
     Route: 042
     Dates: start: 20060701
  2. GABAPENTIN [Concomitant]
  3. PRIMIDONE [Concomitant]

REACTIONS (2)
  - EPILEPSY [None]
  - TYPE III IMMUNE COMPLEX MEDIATED REACTION [None]
